FAERS Safety Report 12167615 (Version 3)
Quarter: 2016Q2

REPORT INFORMATION
  Report Type: Report from Study
  Country: BR (occurrence: BR)
  Receive Date: 20160310
  Receipt Date: 20160404
  Transmission Date: 20160815
  Serious: Yes (Hospitalization, Other)
  Sender: FDA-Public Use
  Company Number: PHHY2015BR105964

PATIENT
  Sex: Male
  Weight: 63 kg

DRUGS (5)
  1. EXJADE [Suspect]
     Active Substance: DEFERASIROX
     Dosage: 25 MG/KG, QD (3 DF OF 500 MG)
     Route: 048
     Dates: end: 201512
  2. FOLIC ACID. [Concomitant]
     Active Substance: FOLIC ACID
     Indication: PRODUCT USED FOR UNKNOWN INDICATION
     Route: 065
  3. PARACETAMOL [Concomitant]
     Active Substance: ACETAMINOPHEN
     Indication: PRODUCT USED FOR UNKNOWN INDICATION
     Route: 065
  4. EXJADE [Suspect]
     Active Substance: DEFERASIROX
     Indication: SICKLE CELL ANAEMIA
     Dosage: 25 MG/KG, QD (3 DF OF 500 MG)
     Route: 048
     Dates: end: 201512
  5. HIDROXIUREA [Concomitant]
     Active Substance: HYDROXYUREA
     Indication: PRODUCT USED FOR UNKNOWN INDICATION
     Dosage: 2 DF, QD
     Route: 048

REACTIONS (10)
  - Generalised erythema [Recovering/Resolving]
  - Chest discomfort [Recovering/Resolving]
  - Sickle cell anaemia with crisis [Unknown]
  - Asthenia [Recovered/Resolved]
  - Hypersensitivity [Recovering/Resolving]
  - Skin fragility [Recovered/Resolved]
  - Cholelithiasis [Recovered/Resolved]
  - Pyrexia [Unknown]
  - Vomiting [Recovered/Resolved]
  - Generalised oedema [Recovering/Resolving]
